FAERS Safety Report 25778120 (Version 3)
Quarter: 2025Q4

REPORT INFORMATION
  Report Type: Report from Study
  Country: CA (occurrence: CA)
  Receive Date: 20250909
  Receipt Date: 20251128
  Transmission Date: 20260118
  Serious: Yes (Other)
  Sender: CELLTRION
  Company Number: CA-CELLTRION INC.-2025CA011084

PATIENT

DRUGS (3)
  1. USTEKINUMAB [Suspect]
     Active Substance: USTEKINUMAB
     Indication: Crohn^s disease
     Dosage: 90 MG, EVERY 8 WEEKS
     Route: 058
     Dates: start: 20241218
  2. USTEKINUMAB [Suspect]
     Active Substance: USTEKINUMAB
     Dosage: MAINTENANCE 90 MG, EVERY 8 WEEKS
     Route: 058
     Dates: start: 20250730
  3. VYVANSE [Concomitant]
     Active Substance: LISDEXAMFETAMINE DIMESYLATE
     Indication: Product used for unknown indication
     Dosage: UNK
     Route: 065

REACTIONS (5)
  - Nasal septum deviation [Recovering/Resolving]
  - Dry skin [Unknown]
  - Fatigue [Unknown]
  - Influenza [Unknown]
  - Intentional dose omission [Unknown]

NARRATIVE: CASE EVENT DATE: 20250409
